FAERS Safety Report 7414424-1 (Version None)
Quarter: 2011Q2

REPORT INFORMATION
  Report Type: 
  Country: None (occurrence: None)
  Receive Date: 20110414
  Receipt Date: 20101220
  Transmission Date: 20111010
  Serious: Yes (Hospitalization, Other)
  Sender: FDA-Public Use
  Company Number: US-BAYER-201030084NA

PATIENT
  Age: 27 Year
  Sex: Female
  Weight: 100 kg

DRUGS (12)
  1. AMBIEN [Concomitant]
     Indication: INSOMNIA
     Dates: start: 20080601
  2. YAZ [Suspect]
     Indication: ORAL CONTRACEPTION
     Route: 048
     Dates: start: 20070701, end: 20080715
  3. YAZ [Suspect]
     Indication: DYSMENORRHOEA
  4. LEXAPRO [Concomitant]
     Indication: DEPRESSION
     Dates: start: 20080601
  5. IMITREX [Concomitant]
     Dates: start: 20080101
  6. IBUPROFEN [Concomitant]
     Dates: start: 20080701
  7. IMITREX [Concomitant]
     Indication: MIGRAINE
     Dates: start: 20050101
  8. IMITREX [Concomitant]
     Dates: start: 20060101
  9. IMITREX [Concomitant]
     Dates: start: 20080101
  10. YASMIN [Suspect]
     Indication: ORAL CONTRACEPTION
     Route: 048
     Dates: start: 20070701, end: 20080715
  11. YASMIN [Suspect]
     Indication: DYSMENORRHOEA
  12. IMITREX [Concomitant]
     Dates: start: 20060101

REACTIONS (8)
  - MUSCLE SPASMS [None]
  - DYSPNOEA [None]
  - HAEMATURIA [None]
  - PULMONARY EMBOLISM [None]
  - PLEURITIC PAIN [None]
  - ABDOMINAL PAIN UPPER [None]
  - NAUSEA [None]
  - VOMITING [None]
